FAERS Safety Report 7982478-X (Version None)
Quarter: 2011Q4

REPORT INFORMATION
  Report Type: 
  Country: None (occurrence: None)
  Receive Date: 20111215
  Receipt Date: 20111207
  Transmission Date: 20120403
  Serious: Yes (Hospitalization)
  Sender: FDA-Public Use
  Company Number: GB-ROCHE-1003819

PATIENT
  Age: 62 Year
  Sex: Female
  Weight: 48.4 kg

DRUGS (7)
  1. VEMURAFENIB [Suspect]
     Dosage: AT REDUCED DOSE
     Dates: start: 20111024
  2. VEMURAFENIB [Suspect]
     Indication: MALIGNANT MELANOMA
     Dosage: LAST DOSE PRIOR SAE WAS ON 02/OCT/2011
     Route: 048
     Dates: start: 20110927
  3. LOSARTAN POTASSIUM [Concomitant]
     Dates: start: 19980101
  4. DICLOFENAC [Concomitant]
     Dates: start: 20111003
  5. ESTRADIOL VALERATE [Concomitant]
     Dates: start: 19980101
  6. PRED FORTE [Concomitant]
     Dates: start: 20111003
  7. BENDROFLUMETHIAZIDE [Concomitant]
     Dates: start: 19980101

REACTIONS (1)
  - MUSCULAR WEAKNESS [None]
